FAERS Safety Report 9974058 (Version 4)
Quarter: 2014Q3

REPORT INFORMATION
  Report Type: Spontaneous
  Country: AT (occurrence: AT)
  Receive Date: 20140306
  Receipt Date: 20140815
  Transmission Date: 20150326
  Serious: Yes (Other)
  Sender: FDA-Public Use
  Company Number: AT-ASTRAZENECA-2014SE12124

PATIENT
  Age: 73 Year
  Sex: Female

DRUGS (42)
  1. CYMBALTA [Suspect]
     Active Substance: DULOXETINE HYDROCHLORIDE
     Indication: PRODUCT USED FOR UNKNOWN INDICATION
     Route: 048
     Dates: start: 201301, end: 20130619
  2. CYMBALTA [Suspect]
     Active Substance: DULOXETINE HYDROCHLORIDE
     Indication: PRODUCT USED FOR UNKNOWN INDICATION
     Route: 048
     Dates: start: 20130620, end: 20130624
  3. RISPERDAL [Suspect]
     Active Substance: RISPERIDONE
     Indication: PRODUCT USED FOR UNKNOWN INDICATION
     Route: 065
     Dates: start: 20130609, end: 20130609
  4. DEPAKINE CHRONO [Suspect]
     Active Substance: VALPROATE SODIUM
     Indication: PRODUCT USED FOR UNKNOWN INDICATION
     Route: 048
     Dates: start: 20130701, end: 20130701
  5. ZOLDEM [Concomitant]
     Active Substance: ZOLPIDEM TARTRATE
     Route: 048
     Dates: end: 20130806
  6. LYRICA [Concomitant]
     Active Substance: PREGABALIN
     Route: 048
     Dates: start: 20130617, end: 20130617
  7. LYRICA [Concomitant]
     Active Substance: PREGABALIN
     Route: 048
     Dates: start: 20130620, end: 20130623
  8. ZOLDEM [Concomitant]
     Active Substance: ZOLPIDEM TARTRATE
     Route: 048
     Dates: end: 20130608
  9. RIVOTRIL [Concomitant]
     Active Substance: CLONAZEPAM
     Route: 048
     Dates: start: 20130819, end: 20130819
  10. BLOPRESS [Suspect]
     Active Substance: CANDESARTAN CILEXETIL
     Indication: PRODUCT USED FOR UNKNOWN INDICATION
     Route: 048
     Dates: start: 20130610
  11. RIVOTRIL [Concomitant]
     Active Substance: CLONAZEPAM
     Route: 048
     Dates: start: 20130710, end: 20130806
  12. RISPERDAL [Suspect]
     Active Substance: RISPERIDONE
     Indication: PRODUCT USED FOR UNKNOWN INDICATION
     Route: 065
     Dates: start: 20130604, end: 20130604
  13. RISPERDAL [Suspect]
     Active Substance: RISPERIDONE
     Indication: PRODUCT USED FOR UNKNOWN INDICATION
     Route: 065
     Dates: start: 20130611, end: 20130709
  14. TRITTICO [Suspect]
     Active Substance: TRAZODONE HYDROCHLORIDE
     Indication: PRODUCT USED FOR UNKNOWN INDICATION
     Route: 048
     Dates: start: 20130705, end: 20130724
  15. LYRICA [Concomitant]
     Active Substance: PREGABALIN
     Route: 048
     Dates: start: 20130611, end: 20130613
  16. TOLVON [Concomitant]
     Active Substance: MIANSERIN
     Route: 048
     Dates: start: 20130624, end: 20130625
  17. RIVOTRIL [Concomitant]
     Active Substance: CLONAZEPAM
     Route: 048
     Dates: start: 20130708, end: 20130709
  18. CYMBALTA [Suspect]
     Active Substance: DULOXETINE HYDROCHLORIDE
     Indication: PRODUCT USED FOR UNKNOWN INDICATION
     Route: 048
     Dates: start: 20130625, end: 20130627
  19. VALDOXAN [Concomitant]
     Active Substance: AGOMELATINE
     Route: 048
     Dates: start: 20130528, end: 20131103
  20. LYRICA [Concomitant]
     Active Substance: PREGABALIN
     Route: 048
     Dates: start: 20130610, end: 20130610
  21. LYRICA [Concomitant]
     Active Substance: PREGABALIN
     Route: 048
     Dates: start: 20130624, end: 20130903
  22. RIVOTRIL [Concomitant]
     Active Substance: CLONAZEPAM
     Route: 048
     Dates: start: 20130617, end: 20130617
  23. RIVOTRIL [Concomitant]
     Active Substance: CLONAZEPAM
     Route: 048
     Dates: start: 20130618, end: 20130623
  24. RIVOTRIL [Concomitant]
     Active Substance: CLONAZEPAM
     Route: 048
     Dates: start: 20130624, end: 20130707
  25. EUTHYROX [Concomitant]
     Active Substance: LEVOTHYROXINE SODIUM
     Route: 048
     Dates: end: 20130713
  26. DEPAKINE CHRONO [Suspect]
     Active Substance: VALPROATE SODIUM
     Indication: PRODUCT USED FOR UNKNOWN INDICATION
     Route: 048
     Dates: start: 20130606, end: 20130630
  27. LYRICA [Concomitant]
     Active Substance: PREGABALIN
     Route: 048
     Dates: start: 20130614, end: 20130616
  28. LYRICA [Concomitant]
     Active Substance: PREGABALIN
     Route: 048
     Dates: start: 20130618, end: 20130619
  29. RIVOTRIL [Concomitant]
     Active Substance: CLONAZEPAM
     Route: 048
     Dates: start: 20130807, end: 20130818
  30. RIVOTRIL [Concomitant]
     Active Substance: CLONAZEPAM
     Route: 048
     Dates: start: 20130820, end: 20130820
  31. RIVOTRIL [Concomitant]
     Active Substance: CLONAZEPAM
     Dosage: CHANGED SEVERAL TIMES
     Route: 048
     Dates: start: 20130617, end: 20130709
  32. MYCOSTATIN ZINKOXID [Concomitant]
     Route: 061
     Dates: start: 20130527, end: 20130701
  33. ADVANTAN [Concomitant]
     Active Substance: CORTICOSTEROID NOS
     Dates: start: 20130701, end: 20131027
  34. CYMBALTA [Suspect]
     Active Substance: DULOXETINE HYDROCHLORIDE
     Indication: PRODUCT USED FOR UNKNOWN INDICATION
     Route: 048
     Dates: start: 20130628, end: 20130701
  35. RISPERDAL [Suspect]
     Active Substance: RISPERIDONE
     Indication: PRODUCT USED FOR UNKNOWN INDICATION
     Route: 065
     Dates: start: 20130610, end: 20130610
  36. DEPAKINE CHRONO [Suspect]
     Active Substance: VALPROATE SODIUM
     Indication: PRODUCT USED FOR UNKNOWN INDICATION
     Route: 048
     Dates: start: 20130702, end: 20130702
  37. DEPAKINE CHRONO [Suspect]
     Active Substance: VALPROATE SODIUM
     Indication: PRODUCT USED FOR UNKNOWN INDICATION
     Route: 048
     Dates: start: 20130703, end: 20130704
  38. RISPERDAL [Suspect]
     Active Substance: RISPERIDONE
     Indication: PRODUCT USED FOR UNKNOWN INDICATION
     Route: 065
     Dates: start: 20130605, end: 20130608
  39. RISPERDAL [Suspect]
     Active Substance: RISPERIDONE
     Indication: PRODUCT USED FOR UNKNOWN INDICATION
     Route: 065
     Dates: end: 20140715
  40. TRITTICO [Suspect]
     Active Substance: TRAZODONE HYDROCHLORIDE
     Indication: PRODUCT USED FOR UNKNOWN INDICATION
     Route: 048
     Dates: start: 20130626, end: 20130704
  41. PANTOLOC [Suspect]
     Active Substance: PANTOPRAZOLE SODIUM
     Route: 048
     Dates: end: 20130707
  42. THROMBO ASS [Concomitant]
     Active Substance: ASPIRIN
     Route: 048
     Dates: start: 20130518

REACTIONS (3)
  - Confusional state [Unknown]
  - Hyponatraemia [Recovered/Resolved]
  - Fatigue [Unknown]

NARRATIVE: CASE EVENT DATE: 20130703
